FAERS Safety Report 17892351 (Version 1)
Quarter: 2020Q2

REPORT INFORMATION
  Report Type: Spontaneous
  Country: US (occurrence: US)
  Receive Date: 20200612
  Receipt Date: 20200612
  Transmission Date: 20200714
  Serious: No
  Sender: FDA-Public Use
  Company Number: US-BIOHAVEN PHARMACEUTICALS-2020BHV00039

PATIENT
  Age: 69 Year
  Sex: Female
  Weight: 70.3 kg

DRUGS (2)
  1. NURTEC ODT [Suspect]
     Active Substance: RIMEGEPANT SULFATE
     Indication: MIGRAINE
     Dosage: 75 MG, 1X/DAY
     Route: 048
     Dates: start: 20200507
  2. ^GENERIC IMITREX^ [Concomitant]
     Dosage: 9 TABLETS A MONTH

REACTIONS (3)
  - Migraine [Not Recovered/Not Resolved]
  - Restlessness [Not Recovered/Not Resolved]
  - Therapeutic product effect incomplete [Not Recovered/Not Resolved]

NARRATIVE: CASE EVENT DATE: 20200507
